FAERS Safety Report 10222459 (Version 1)
Quarter: 2014Q2

REPORT INFORMATION
  Report Type: Spontaneous
  Country: FR (occurrence: FR)
  Receive Date: 20140606
  Receipt Date: 20140606
  Transmission Date: 20141212
  Serious: Yes (Hospitalization)
  Sender: FDA-Public Use
  Company Number: FR-PFIZER INC-2014150995

PATIENT
  Age: 24 Year
  Sex: Female

DRUGS (1)
  1. ZITHROMAX [Suspect]
     Indication: TONSILLITIS
     Dosage: 500 MG, DAILY
     Dates: start: 20140310, end: 20140313

REACTIONS (7)
  - Eosinophilia [Recovering/Resolving]
  - Adenovirus infection [Unknown]
  - Lymphadenopathy [Unknown]
  - Inflammation [Unknown]
  - Asthenia [Unknown]
  - Dyspnoea exertional [Unknown]
  - Palpitations [Unknown]
